FAERS Safety Report 5711929-6 (Version None)
Quarter: 2008Q2

REPORT INFORMATION
  Report Type: 
  Country: None (occurrence: None)
  Receive Date: 20080421
  Receipt Date: 20080409
  Transmission Date: 20081010
  Serious: Yes (Other)
  Sender: FDA-Public Use
  Company Number: US-ELI_LILLY_AND_COMPANY-US200803002107

PATIENT
  Age: 11 Year
  Sex: Male

DRUGS (3)
  1. STRATTERA [Suspect]
     Indication: ATTENTION DEFICIT/HYPERACTIVITY DISORDER
     Dosage: 60 MG, UNK
     Dates: start: 20080125, end: 20080302
  2. STRATTERA [Suspect]
     Dosage: 40 MG, UNK
     Dates: start: 20080304, end: 20080101
  3. STRATTERA [Suspect]
     Dosage: 60 MG, UNK
     Dates: start: 20080101

REACTIONS (2)
  - CHEST PAIN [None]
  - DYSGEUSIA [None]
